FAERS Safety Report 8758399 (Version 2)
Quarter: 2014Q3

REPORT INFORMATION
  Report Type: Spontaneous
  Country: US (occurrence: None)
  Receive Date: 20120814
  Receipt Date: 20140801
  Transmission Date: 20150326
  Serious: Yes (Death)
  Sender: FDA-Public Use
  Company Number: 20120025

PATIENT
  Age: 67 Year
  Sex: Male

DRUGS (12)
  1. LEVAQUIN [Concomitant]
     Active Substance: LEVOFLOXACIN
  2. SUBSYS [Suspect]
     Active Substance: FENTANYL
     Indication: PANCREATIC CARCINOMA
     Dosage: 400 MCG
     Route: 060
     Dates: start: 20120709, end: 20120718
  3. TIMOLOL [Concomitant]
     Active Substance: TIMOLOL
  4. XALATAN EYE DROPS [Concomitant]
  5. ALDACTONE [Concomitant]
     Active Substance: SPIRONOLACTONE
  6. METHADONE [Concomitant]
     Active Substance: METHADONE HYDROCHLORIDE
  7. FLORINEF ACETATE [Concomitant]
     Active Substance: FLUDROCORTISONE ACETATE
  8. SANCUSO PATCH (POULTICE OR PATCH) [Concomitant]
  9. DECADRON [Concomitant]
     Active Substance: DEXAMETHASONE
  10. SEROQUEL [Concomitant]
     Active Substance: QUETIAPINE FUMARATE
  11. PROLOSEC [Concomitant]
  12. GABAPENTIN. [Concomitant]
     Active Substance: GABAPENTIN

REACTIONS (2)
  - Death [None]
  - Pancreatic carcinoma [None]

NARRATIVE: CASE EVENT DATE: 20120718
